FAERS Safety Report 15683705 (Version 1)
Quarter: 2018Q4

REPORT INFORMATION
  Report Type: Spontaneous
  Country: None (occurrence: GB)
  Receive Date: 20181204
  Receipt Date: 20181204
  Transmission Date: 20190205
  Serious: Yes (Hospitalization)
  Sender: FDA-Public Use
  Company Number: GB-ORION CORPORATION ORION PHARMA-18_00004913

PATIENT
  Age: 62 Year
  Sex: Female

DRUGS (2)
  1. METHOTREXATE. [Suspect]
     Active Substance: METHOTREXATE
     Indication: RHEUMATOID ARTHRITIS
     Dosage: STOPPED DUE TO EVENT AND THEN RESTARTED AROUND 4 WEEKS AFTER DISCHARGE FROM HOSPITAL.
     Route: 065
  2. TOCILIZUMAB. [Suspect]
     Active Substance: TOCILIZUMAB
     Indication: RHEUMATOID ARTHRITIS
     Route: 058

REACTIONS (6)
  - Intervertebral discitis [Recovered/Resolved]
  - Zoonotic bacterial infection [Recovered/Resolved]
  - Streptobacillus infection [Recovered/Resolved]
  - Arthritis bacterial [Recovered/Resolved]
  - Acute kidney injury [Recovered/Resolved]
  - Spinal cord oedema [Recovered/Resolved]
